FAERS Safety Report 8883647 (Version 2)
Quarter: 2012Q4

REPORT INFORMATION
  Report Type: 
  Country: CA (occurrence: CA)
  Receive Date: 20121102
  Receipt Date: 20121111
  Transmission Date: 20130627
  Serious: Yes (Hospitalization, Other)
  Sender: FDA-Public Use
  Company Number: CA-BRISTOL-MYERS SQUIBB COMPANY-17069642

PATIENT
  Age: 66 Year
  Sex: Male

DRUGS (5)
  1. YERVOY [Suspect]
     Indication: METASTATIC MALIGNANT MELANOMA
     Dosage: Second infusion on 04-Oct-2012
Interrupted on:25-Oct12
     Route: 042
     Dates: start: 20120913
  2. CODEINE PHOSPHATE [Suspect]
  3. AVALIDE [Concomitant]
  4. PRAVACHOL [Concomitant]
  5. NORVASC [Concomitant]

REACTIONS (4)
  - Malignant neoplasm progression [Not Recovered/Not Resolved]
  - Dyspnoea [Unknown]
  - Constipation [Unknown]
  - Tumour pain [Unknown]
